FAERS Safety Report 5211886-5 (Version None)
Quarter: 2006Q4

REPORT INFORMATION
  Report Type: 
  Country: None (occurrence: None)
  Receive Date: 20061101
  Receipt Date: 20060805
  Transmission Date: 20070319
  Serious: No
  Sender: FDA-Public Use
  Company Number: 2006PV018943

PATIENT
  Age: 34 Year
  Sex: Female

DRUGS (2)
  1. SYMLIN [Suspect]
     Indication: DIABETES MELLITUS INSULIN-DEPENDENT
     Dosage: 60 MCG; SC
     Route: 058
     Dates: start: 20060701
  2. HUMALOG [Concomitant]

REACTIONS (2)
  - INJECTION SITE DISCOLOURATION [None]
  - NAUSEA [None]
